FAERS Safety Report 17523294 (Version 1)
Quarter: 2020Q1

REPORT INFORMATION
  Report Type: Report from Study
  Country: US (occurrence: US)
  Receive Date: 20200310
  Receipt Date: 20200310
  Transmission Date: 20200409
  Serious: Yes (Death, Hospitalization)
  Sender: FDA-Public Use
  Company Number: PHHY2018US039321

PATIENT
  Age: 71 Year
  Sex: Male
  Weight: 68.4 kg

DRUGS (4)
  1. AZITHROMYCIN ANHYDROUS. [Concomitant]
     Active Substance: AZITHROMYCIN ANHYDROUS
     Indication: MYCOBACTERIUM AVIUM COMPLEX INFECTION
     Dosage: 250 MG, UNK
     Route: 048
     Dates: start: 2015
  2. LAMPRENE [Suspect]
     Active Substance: CLOFAZIMINE
     Indication: MYCOBACTERIAL INFECTION
     Dosage: 100 MG, UNK
     Route: 048
     Dates: start: 20170724
  3. STREPTOMYCIN [Concomitant]
     Active Substance: STREPTOMYCIN SULFATE
     Indication: MYCOBACTERIUM AVIUM COMPLEX INFECTION
     Dosage: 400 MG, UNK
     Route: 030
     Dates: start: 201707, end: 201802
  4. ETHAMBUTOL [Concomitant]
     Active Substance: ETHAMBUTOL HYDROCHLORIDE
     Indication: MYCOBACTERIUM AVIUM COMPLEX INFECTION
     Dosage: 1200 MG, UNK
     Route: 048
     Dates: start: 2016

REACTIONS (7)
  - Dyspnoea [Not Recovered/Not Resolved]
  - Sputum increased [Not Recovered/Not Resolved]
  - Headache [Not Recovered/Not Resolved]
  - Chronic respiratory failure [Fatal]
  - Chest pain [Unknown]
  - Lung disorder [Not Recovered/Not Resolved]
  - Pneumothorax [Unknown]

NARRATIVE: CASE EVENT DATE: 20180208
